FAERS Safety Report 9648460 (Version 1)
Quarter: 2013Q4

REPORT INFORMATION
  Report Type: Spontaneous
  Country: None (occurrence: None)
  Receive Date: 20131025
  Receipt Date: 20131025
  Transmission Date: 20140711
  Serious: No
  Sender: FDA-Public Use
  Company Number: None

PATIENT
  Age: 45 Year
  Sex: Male
  Weight: 70.31 kg

DRUGS (1)
  1. LEXAPRO [Suspect]
     Indication: DEPRESSION
     Dosage: 1 PILL ONCE DAILY
     Route: 048
     Dates: start: 20041004

REACTIONS (3)
  - Amnesia [None]
  - Disturbance in attention [None]
  - Premature ageing [None]
